FAERS Safety Report 15637243 (Version 1)
Quarter: 2018Q4

REPORT INFORMATION
  Report Type: Report from Study
  Country: US (occurrence: US)
  Receive Date: 20181120
  Receipt Date: 20181120
  Transmission Date: 20190205
  Serious: Yes (Hospitalization)
  Sender: FDA-Public Use
  Company Number: US-IPSEN BIOPHARMACEUTICALS, INC.-2018-12782

PATIENT
  Age: 11 Year
  Sex: Female
  Weight: 36.6 kg

DRUGS (36)
  1. DYSPORT [Suspect]
     Active Substance: ABOBOTULINUMTOXINA
     Dosage: 1000 UNITS
     Route: 030
     Dates: start: 20180710, end: 20180710
  2. LAMOTRIGINE. [Concomitant]
     Active Substance: LAMOTRIGINE
     Indication: SEIZURE
     Dates: start: 20170427
  3. BACLOFEN. [Concomitant]
     Active Substance: BACLOFEN
     Route: 037
     Dates: start: 20150814, end: 20150902
  4. MONTELUKAST [Concomitant]
     Active Substance: MONTELUKAST SODIUM
     Dates: start: 20131210
  5. LANSOPRAZOLE. [Concomitant]
     Active Substance: LANSOPRAZOLE
     Indication: GASTROOESOPHAGEAL REFLUX DISEASE
     Dates: start: 20141214
  6. METHYLPREDNISOLONE. [Concomitant]
     Active Substance: METHYLPREDNISOLONE
     Indication: AUTOIMMUNE ENCEPHALOPATHY
     Dosage: 2 DAYS EVERY 4 WEEKS PIGGYBACKED ON IMMUNE GLOBULIN
     Route: 042
     Dates: start: 20140612
  7. TRIAMCINALONE CREAM [Concomitant]
     Indication: ERYTHEMA
     Dosage: ONE LOCAL APPLICATION
     Route: 061
     Dates: start: 20170101
  8. FLUTICASONE-SALMETEROL [Concomitant]
     Indication: RESPIRATORY FAILURE
     Dosage: 2 PUFF
     Dates: start: 20131211
  9. BACLOFEN. [Concomitant]
     Active Substance: BACLOFEN
     Route: 037
     Dates: start: 20101120, end: 20101209
  10. BACLOFEN. [Concomitant]
     Active Substance: BACLOFEN
     Route: 037
     Dates: start: 20121109, end: 20121111
  11. BACLOFEN. [Concomitant]
     Active Substance: BACLOFEN
     Route: 037
     Dates: start: 20131206, end: 20150813
  12. BACLOFEN. [Concomitant]
     Active Substance: BACLOFEN
     Route: 037
     Dates: start: 20150902, end: 20150911
  13. BACLOFEN. [Concomitant]
     Active Substance: BACLOFEN
     Route: 037
     Dates: start: 20160504
  14. RANITIDINE. [Concomitant]
     Active Substance: RANITIDINE
     Indication: GASTROOESOPHAGEAL REFLUX DISEASE
     Dates: start: 20150101
  15. MIRALAX [Concomitant]
     Active Substance: POLYETHYLENE GLYCOL 3350
     Indication: CONSTIPATION
     Dates: start: 20150101
  16. OXYBUTININ [Concomitant]
     Active Substance: OXYBUTYNIN
     Indication: NEUROGENIC BLADDER
     Dosage: 3 DAY PATCH
     Route: 062
     Dates: start: 20160101
  17. BACLOFEN. [Concomitant]
     Active Substance: BACLOFEN
     Route: 037
     Dates: start: 20121111, end: 20121210
  18. LACOSAMIDE. [Concomitant]
     Active Substance: LACOSAMIDE
     Indication: SEIZURE
     Dates: start: 20150517
  19. TOLTERODINE [Concomitant]
     Active Substance: TOLTERODINE
     Indication: NEUROGENIC BLADDER
     Dates: start: 20160414
  20. POTASSIUM [Concomitant]
     Active Substance: POTASSIUM
     Indication: AUTOIMMUNE DISORDER
     Dates: start: 20150101
  21. MAGNESIUM [Concomitant]
     Active Substance: MAGNESIUM
     Indication: AUTOIMMUNE DISORDER
     Dates: start: 20150101
  22. BACLOFEN. [Concomitant]
     Active Substance: BACLOFEN
     Indication: MUSCLE SPASTICITY
     Route: 037
     Dates: start: 20101101, end: 20101214
  23. BACLOFEN. [Concomitant]
     Active Substance: BACLOFEN
     Route: 037
     Dates: start: 20121210, end: 20130422
  24. BACLOFEN. [Concomitant]
     Active Substance: BACLOFEN
     Route: 037
     Dates: start: 20131004, end: 20131217
  25. MONTELUKAST [Concomitant]
     Active Substance: MONTELUKAST SODIUM
     Indication: RESPIRATORY FAILURE
     Dates: start: 20131210
  26. DYSPORT [Suspect]
     Active Substance: ABOBOTULINUMTOXINA
     Indication: MUSCLE SPASTICITY
     Dosage: 800 UNITS
     Route: 030
     Dates: start: 20180115, end: 20180115
  27. TRAZODONE [Concomitant]
     Active Substance: TRAZODONE HYDROCHLORIDE
     Indication: HYPERSOMNIA
     Dates: start: 20140131
  28. BACLOFEN. [Concomitant]
     Active Substance: BACLOFEN
     Route: 037
     Dates: start: 20131002, end: 20131004
  29. BACLOFEN. [Concomitant]
     Active Substance: BACLOFEN
     Route: 037
     Dates: start: 20150911, end: 20151008
  30. BACLOFEN. [Concomitant]
     Active Substance: BACLOFEN
     Route: 037
     Dates: start: 20130422, end: 20131002
  31. BACLOFEN. [Concomitant]
     Active Substance: BACLOFEN
     Route: 048
     Dates: start: 20130422
  32. BACLOFEN. [Concomitant]
     Active Substance: BACLOFEN
     Route: 037
     Dates: start: 20150813, end: 20150814
  33. BACLOFEN. [Concomitant]
     Active Substance: BACLOFEN
     Route: 037
     Dates: start: 20151008, end: 20160504
  34. LEVETIRACETAM. [Concomitant]
     Active Substance: LEVETIRACETAM
     Indication: SEIZURE
     Dosage: AS NEEDED
     Route: 042
     Dates: start: 20150901
  35. MIDAZOLAM [Concomitant]
     Active Substance: MIDAZOLAM HYDROCHLORIDE
     Indication: SEIZURE
     Route: 045
     Dates: start: 20150901
  36. ALBUTEROL. [Concomitant]
     Active Substance: ALBUTEROL
     Indication: RESPIRATORY FAILURE
     Route: 055
     Dates: start: 20100101

REACTIONS (7)
  - Abdominal pain [Recovered/Resolved]
  - Nausea [Unknown]
  - Feeding intolerance [Recovered/Resolved]
  - Abdominal pain [Unknown]
  - Urinary tract infection [Recovered/Resolved]
  - Bacteraemia [Recovered/Resolved]
  - Urinary tract infection [Recovered/Resolved]

NARRATIVE: CASE EVENT DATE: 20180213
